FAERS Safety Report 16733428 (Version 1)
Quarter: 2019Q3

REPORT INFORMATION
  Report Type: Spontaneous
  Country: FR (occurrence: FR)
  Receive Date: 20190823
  Receipt Date: 20190823
  Transmission Date: 20191005
  Serious: Yes (Hospitalization)
  Sender: FDA-Public Use
  Company Number: FR-AUROBINDO-AUR-APL-2019-054936

PATIENT

DRUGS (5)
  1. IZALGI [Suspect]
     Active Substance: ACETAMINOPHEN\OPIUM
     Indication: PRODUCT USED FOR UNKNOWN INDICATION
     Dosage: 6 DOSAGE FORM, ONCE A DAY
     Route: 048
     Dates: start: 20190716
  2. VANCOMYCINE [Concomitant]
     Active Substance: VANCOMYCIN
     Indication: HAEMATOMA
     Dosage: 3 GRAM, ONCE A DAY
     Route: 041
     Dates: start: 20190723
  3. RIFADINE [Suspect]
     Active Substance: RIFAMPIN
     Indication: HAEMATOMA
     Dosage: 1200 MILLIGRAM, ONCE A DAY
     Route: 041
     Dates: start: 20190716
  4. CEFTRIAXONE. [Concomitant]
     Active Substance: CEFTRIAXONE
     Indication: HAEMATOMA
     Dosage: 2 GRAM, ONCE A DAY
     Route: 041
     Dates: start: 20190723
  5. PANTOPRAZOLE [Suspect]
     Active Substance: PANTOPRAZOLE
     Indication: PRODUCT USED FOR UNKNOWN INDICATION
     Dosage: 40 MILLIGRAM, ONCE A DAY
     Route: 048
     Dates: start: 20190716

REACTIONS (1)
  - Vascular purpura [Not Recovered/Not Resolved]

NARRATIVE: CASE EVENT DATE: 20190725
